FAERS Safety Report 6054000-9 (Version None)
Quarter: 2009Q1

REPORT INFORMATION
  Report Type: 
  Country: None (occurrence: None)
  Receive Date: 20090127
  Receipt Date: 20090121
  Transmission Date: 20090719
  Serious: Yes (Death, Other)
  Sender: FDA-Public Use
  Company Number: CA-CELGENEUS-028-21880-08101728

PATIENT
  Sex: Male

DRUGS (1)
  1. REVLIMID [Suspect]
     Route: 048
     Dates: start: 20080115, end: 20080717

REACTIONS (2)
  - ACUTE LEUKAEMIA [None]
  - MYELODYSPLASTIC SYNDROME [None]
